FAERS Safety Report 18015784 (Version 3)
Quarter: 2020Q3

REPORT INFORMATION
  Report Type: Report from Study
  Country: US (occurrence: US)
  Receive Date: 20200713
  Receipt Date: 20200831
  Transmission Date: 20201103
  Serious: Yes (Other)
  Sender: FDA-Public Use
  Company Number: US-009507513-2007USA000514

PATIENT
  Age: 23 Year
  Sex: Female
  Weight: 91.62 kg

DRUGS (1)
  1. IMPLANON [Suspect]
     Active Substance: ETONOGESTREL
     Indication: CONTRACEPTION
     Dosage: 1 ROD EVERY THREE YEARS; STRENGTH: 68 MG
     Route: 059
     Dates: start: 20180512, end: 20200526

REACTIONS (6)
  - Device dislocation [Recovered/Resolved]
  - Implant site fibrosis [Unknown]
  - Medical device site discomfort [Recovered/Resolved]
  - Implant site pain [Unknown]
  - Device kink [Recovered/Resolved]
  - Complication of device removal [Recovered/Resolved]

NARRATIVE: CASE EVENT DATE: 20200520
